FAERS Safety Report 11886668 (Version 2)
Quarter: 2016Q1

REPORT INFORMATION
  Report Type: Spontaneous
  Country: IT (occurrence: IT)
  Receive Date: 20160104
  Receipt Date: 20160107
  Transmission Date: 20160526
  Serious: Yes (Hospitalization)
  Sender: FDA-Public Use
  Company Number: IT-SA-2015SA222393

PATIENT
  Age: 24 Year
  Sex: Male

DRUGS (2)
  1. LANTUS [Suspect]
     Active Substance: INSULIN GLARGINE
     Indication: DIABETES MELLITUS
     Dosage: LANTUS (INSULIN GLARGINE) 100 IU/ML SOLUTION FOR INJECTION - SUBCUTANEOUS USE - VIAL 10 ML ^ 1 VIAL
     Route: 058
  2. HUMALOG [Suspect]
     Active Substance: INSULIN LISPRO
     Indication: DIABETES MELLITUS
     Dosage: HUMALOG (INSULIN LISPRO) 100 U/ML SOLUTION FOR INJECTION 1 VIAL 10 ML
     Route: 058

REACTIONS (2)
  - Metabolic acidosis [Unknown]
  - Inappropriate schedule of drug administration [Unknown]

NARRATIVE: CASE EVENT DATE: 20150902
